FAERS Safety Report 6974040-2 (Version None)
Quarter: 2010Q3

REPORT INFORMATION
  Report Type: 
  Country: None (occurrence: None)
  Receive Date: 20100909
  Receipt Date: 20100728
  Transmission Date: 20110219
  Serious: Yes (Death, Hospitalization, Other)
  Sender: FDA-Public Use
  Company Number: US-BAXTER-2010BH005217

PATIENT
  Age: 62 Year
  Sex: Male

DRUGS (38)
  1. HEPARIN SODIUM INJECTION [Suspect]
     Indication: CORONARY ARTERY BYPASS
     Route: 040
     Dates: start: 20070507, end: 20070507
  2. HEPARIN SODIUM INJECTION [Suspect]
     Indication: THROMBOEMBOLECTOMY
     Route: 040
     Dates: start: 20070507, end: 20070507
  3. HEPARIN SODIUM INJECTION [Suspect]
     Indication: PULMONARY EMBOLISM
     Route: 040
     Dates: start: 20070507, end: 20070507
  4. HEPARIN SODIUM INJECTION [Suspect]
     Indication: THROMBOLYSIS
     Route: 040
     Dates: start: 20070507, end: 20070507
  5. HEPARIN SODIUM INJECTION [Suspect]
     Route: 040
     Dates: start: 20070507, end: 20070507
  6. HEPARIN SODIUM INJECTION [Suspect]
     Route: 040
     Dates: start: 20070507, end: 20070507
  7. HEPARIN SODIUM INJECTION [Suspect]
     Route: 040
     Dates: start: 20070507, end: 20070507
  8. HEPARIN SODIUM INJECTION [Suspect]
     Route: 040
     Dates: start: 20070507, end: 20070507
  9. HEPARIN SODIUM INJECTION [Suspect]
     Route: 042
     Dates: start: 20070507, end: 20070507
  10. HEPARIN SODIUM INJECTION [Suspect]
     Route: 042
     Dates: start: 20070507, end: 20070507
  11. HEPARIN SODIUM INJECTION [Suspect]
     Route: 042
     Dates: start: 20070507, end: 20070507
  12. HEPARIN SODIUM INJECTION [Suspect]
     Route: 042
     Dates: start: 20070507, end: 20070507
  13. HEPARIN SODIUM INJECTION [Suspect]
     Route: 042
     Dates: start: 20070507, end: 20070507
  14. HEPARIN SODIUM INJECTION [Suspect]
     Route: 042
     Dates: start: 20070507, end: 20070507
  15. HEPARIN SODIUM INJECTION [Suspect]
     Route: 042
     Dates: start: 20070507, end: 20070507
  16. HEPARIN SODIUM INJECTION [Suspect]
     Route: 042
     Dates: start: 20070507, end: 20070507
  17. HEPARIN SODIUM INJECTION [Suspect]
     Route: 040
     Dates: start: 20070523, end: 20070523
  18. HEPARIN SODIUM INJECTION [Suspect]
     Route: 040
     Dates: start: 20070523, end: 20070523
  19. HEPARIN SODIUM INJECTION [Suspect]
     Route: 040
     Dates: start: 20070523, end: 20070523
  20. HEPARIN SODIUM INJECTION [Suspect]
     Route: 040
     Dates: start: 20070523, end: 20070523
  21. HEPARIN SODIUM INJECTION [Suspect]
     Route: 042
     Dates: start: 20070523, end: 20070523
  22. HEPARIN SODIUM INJECTION [Suspect]
     Route: 042
     Dates: start: 20070523, end: 20070523
  23. HEPARIN SODIUM INJECTION [Suspect]
     Route: 042
     Dates: start: 20070523, end: 20070523
  24. HEPARIN SODIUM INJECTION [Suspect]
     Route: 042
     Dates: start: 20070523, end: 20070523
  25. HEPARIN SODIUM INJECTION [Suspect]
     Route: 042
     Dates: start: 20070523, end: 20070523
  26. HEPARIN SODIUM INJECTION [Suspect]
     Route: 042
     Dates: start: 20070523, end: 20070523
  27. HEPARIN SODIUM INJECTION [Suspect]
     Route: 042
     Dates: start: 20070523, end: 20070523
  28. HEPARIN SODIUM INJECTION [Suspect]
     Route: 042
     Dates: start: 20070523, end: 20070523
  29. HEPARIN SODIUM 1,000 UNITS AND SODIUM CHLORIDE 0.9% [Suspect]
     Indication: PRODUCT USED FOR UNKNOWN INDICATION
     Route: 041
     Dates: start: 20070507, end: 20070510
  30. HEPARIN SODIUM 5,000 UNITS IN DEXTROSE 5% [Suspect]
     Indication: PULMONARY EMBOLISM
     Route: 041
     Dates: start: 20070523, end: 20070525
  31. WARFARIN SODIUM [Suspect]
     Indication: ANTICOAGULANT THERAPY
     Route: 048
     Dates: start: 20070524, end: 20070527
  32. WARFARIN SODIUM [Suspect]
     Route: 042
     Dates: start: 20070602, end: 20070616
  33. LIPITOR [Concomitant]
     Indication: PRODUCT USED FOR UNKNOWN INDICATION
     Route: 065
  34. ASPIRIN [Concomitant]
     Indication: CORONARY ARTERY DISEASE
     Route: 065
  35. METOPROLOL TARTRATE [Concomitant]
     Indication: PRODUCT USED FOR UNKNOWN INDICATION
     Route: 065
  36. LISINOPRIL [Concomitant]
     Indication: PRODUCT USED FOR UNKNOWN INDICATION
     Route: 065
  37. DIGOXIN [Concomitant]
     Indication: PRODUCT USED FOR UNKNOWN INDICATION
     Route: 065
  38. PERCOCET [Concomitant]
     Indication: PRODUCT USED FOR UNKNOWN INDICATION
     Route: 065

REACTIONS (22)
  - ANAEMIA [None]
  - ARTERIAL THROMBOSIS [None]
  - CARDIAC FAILURE CONGESTIVE [None]
  - CHOLECYSTITIS ACUTE [None]
  - CLOSTRIDIUM DIFFICILE COLITIS [None]
  - CORONARY ARTERY DISEASE [None]
  - FEMORAL ARTERY EMBOLISM [None]
  - FLUID OVERLOAD [None]
  - HAEMORRHAGE [None]
  - HYPOTENSION [None]
  - ILIAC ARTERY EMBOLISM [None]
  - ISCHAEMIC HEPATITIS [None]
  - MASTOIDITIS [None]
  - METABOLIC ACIDOSIS [None]
  - PERICARDIAL EFFUSION [None]
  - PULMONARY EMBOLISM [None]
  - RENAL FAILURE ACUTE [None]
  - RESPIRATORY FAILURE [None]
  - SEPSIS [None]
  - SMALL INTESTINAL OBSTRUCTION [None]
  - TACHYCARDIA [None]
  - TRANSVERSE SINUS THROMBOSIS [None]
